FAERS Safety Report 25283578 (Version 4)
Quarter: 2025Q4

REPORT INFORMATION
  Report Type: Report from Study
  Country: US (occurrence: US)
  Receive Date: 20250508
  Receipt Date: 20251216
  Transmission Date: 20260117
  Serious: Yes (Hospitalization)
  Sender: MERCK SHARP & DOHME LLC
  Company Number: US-009507513-2282656

PATIENT
  Sex: Female
  Weight: 62.142 kg

DRUGS (30)
  1. WINREVAIR [Suspect]
     Active Substance: SOTATERCEPT-CSRK
     Indication: Pulmonary arterial hypertension
     Dosage: 1 ML Q3W
     Route: 058
  2. WINREVAIR [Suspect]
     Active Substance: SOTATERCEPT-CSRK
     Dosage: 1 ML Q3W
     Route: 058
     Dates: start: 2024
  3. WINREVAIR [Suspect]
     Active Substance: SOTATERCEPT-CSRK
     Dates: start: 202510, end: 202510
  4. WINREVAIR [Suspect]
     Active Substance: SOTATERCEPT-CSRK
  5. ORENITRAM [Suspect]
     Active Substance: TREPROSTINIL
     Indication: Pulmonary arterial hypertension
     Dosage: TIME INTERVAL: 0.33333333 DAYS: 6 MG THREE TIMES A DAY
  6. ORENITRAM [Suspect]
     Active Substance: TREPROSTINIL
     Indication: Pulmonary arterial hypertension
     Dosage: TIME INTERVAL: 0.33333333 DAYS: 5 MG THREE TIMES A DAY
  7. ORENITRAM [Suspect]
     Active Substance: TREPROSTINIL
     Indication: Pulmonary arterial hypertension
     Dates: start: 20250814
  8. REMODULIN [Suspect]
     Active Substance: TREPROSTINIL
     Indication: Pulmonary arterial hypertension
     Dosage: UNK, CONTINUING
     Route: 058
     Dates: start: 20230328
  9. REMODULIN [Suspect]
     Active Substance: TREPROSTINIL
     Indication: Pulmonary arterial hypertension
     Dosage: 0.065 ?G/KG (PATIENT FILL WITH 2.4 ML PER CASSETTE; PUMP RATE 27 MCL PER HOUR), CONTINUOUS
     Route: 058
  10. ADEMPAS [Concomitant]
     Active Substance: RIOCIGUAT
  11. SPIRONOLACTONE AND HYDROCHLOROTHIAZIDE [Concomitant]
     Active Substance: HYDROCHLOROTHIAZIDE\SPIRONOLACTONE
  12. METOPROLOL SUCCINATE [Concomitant]
     Active Substance: METOPROLOL SUCCINATE
  13. TYLENOL [Concomitant]
     Active Substance: ACETAMINOPHEN
  14. PRAVASTATIN SODIUM [Concomitant]
     Active Substance: PRAVASTATIN SODIUM
  15. VITAMIN D3 [Concomitant]
     Active Substance: CHOLECALCIFEROL
  16. POTASSIUM [Concomitant]
     Active Substance: POTASSIUM
  17. ASPIRIN [Concomitant]
     Active Substance: ASPIRIN
  18. DOXYCYCLINE HYCLATE [Concomitant]
     Active Substance: DOXYCYCLINE HYCLATE
  19. OFEV [Concomitant]
     Active Substance: NINTEDANIB
  20. OXYGEN [Concomitant]
     Active Substance: OXYGEN
  21. CALCIUM [Concomitant]
     Active Substance: CALCIUM
  22. LISINOPRIL [Concomitant]
     Active Substance: LISINOPRIL
  23. OMEPRAZOLE [Concomitant]
     Active Substance: OMEPRAZOLE
  24. TOPROL XL [Concomitant]
     Active Substance: METOPROLOL SUCCINATE
  25. PANTOPRAZOLE SODIUM [Concomitant]
     Active Substance: PANTOPRAZOLE SODIUM
  26. SODIUM CHLORIDE [Concomitant]
     Active Substance: SODIUM CHLORIDE
  27. ASPIRIN [Concomitant]
     Active Substance: ASPIRIN
  28. OMEPRAZOLE [Concomitant]
     Active Substance: OMEPRAZOLE
  29. LOPERAMIDE [Concomitant]
     Active Substance: LOPERAMIDE
  30. DIETARY SUPPLEMENT\PROBIOTICS [Concomitant]
     Active Substance: DIETARY SUPPLEMENT\PROBIOTICS NOS

REACTIONS (7)
  - Epistaxis [Recovered/Resolved]
  - Anxiety [Unknown]
  - Headache [Recovered/Resolved]
  - Decreased appetite [Unknown]
  - Nausea [Unknown]
  - Headache [Unknown]
  - Dizziness [Recovered/Resolved]
